FAERS Safety Report 13261462 (Version 1)
Quarter: 2017Q1

REPORT INFORMATION
  Report Type: Spontaneous
  Country: JP (occurrence: JP)
  Receive Date: 20170222
  Receipt Date: 20170222
  Transmission Date: 20170428
  Serious: Yes (Other)
  Sender: FDA-Public Use
  Company Number: JP-BRISTOL-MYERS SQUIBB COMPANY-BMS-2017-011620

PATIENT
  Age: 48 Year
  Sex: Male

DRUGS (6)
  1. SUTENT [Concomitant]
     Active Substance: SUNITINIB MALATE
     Indication: INTERSTITIAL LUNG DISEASE
     Route: 065
  2. INSULIN [Concomitant]
     Active Substance: INSULIN NOS
     Indication: GLUCOSE TOLERANCE DECREASED
     Dosage: UNK
     Route: 065
  3. PIOGLITAZONE HYDROCHLORIDE. [Concomitant]
     Active Substance: PIOGLITAZONE HYDROCHLORIDE
     Indication: GLUCOSE TOLERANCE DECREASED
     Dosage: UNK
     Route: 048
  4. METGLUCO [Suspect]
     Active Substance: METFORMIN HYDROCHLORIDE
     Indication: GLUCOSE TOLERANCE DECREASED
     Dosage: UNK
     Route: 048
  5. SUTENT [Concomitant]
     Active Substance: SUNITINIB MALATE
     Indication: METASTASES TO LUNG
     Dosage: UNK
     Route: 065
  6. EVEROLIMUS [Concomitant]
     Active Substance: EVEROLIMUS
     Indication: METASTASES TO BONE
     Dosage: UNK
     Route: 048

REACTIONS (2)
  - Melaena [Unknown]
  - Product use issue [Unknown]
